FAERS Safety Report 6167906-7 (Version None)
Quarter: 2009Q2

REPORT INFORMATION
  Report Type: 
  Country: None (occurrence: None)
  Receive Date: 20090424
  Receipt Date: 20090424
  Transmission Date: 20091009
  Serious: Yes (Other)
  Sender: FDA-Public Use
  Company Number: None

PATIENT
  Age: 58 Year
  Sex: Female
  Weight: 119.7496 kg

DRUGS (1)
  1. DIGOXIN [Suspect]
     Indication: HEART RATE IRREGULAR
     Dosage: 1 PILL DAILY
     Dates: start: 20090316, end: 20090411

REACTIONS (2)
  - ARRHYTHMIA [None]
  - PRODUCT QUALITY ISSUE [None]
